FAERS Safety Report 5927972-8 (Version None)
Quarter: 2008Q4

REPORT INFORMATION
  Report Type: 
  Country: None (occurrence: None)
  Receive Date: 20081023
  Receipt Date: 20081016
  Transmission Date: 20090506
  Serious: Yes (Other)
  Sender: FDA-Public Use
  Company Number: US-WYE-H06286208

PATIENT
  Age: 42 Year
  Sex: Female

DRUGS (3)
  1. MYLOTARG [Suspect]
     Indication: ACUTE PROMYELOCYTIC LEUKAEMIA
     Route: 042
     Dates: start: 20080801
  2. ALL-TRANS RETINOIC ACID [Concomitant]
     Indication: ACUTE PROMYELOCYTIC LEUKAEMIA
  3. ARSENIC TRIOXIDE [Concomitant]
     Indication: ACUTE PROMYELOCYTIC LEUKAEMIA

REACTIONS (2)
  - CHILLS [None]
  - SUPRAVENTRICULAR TACHYCARDIA [None]
